FAERS Safety Report 25264170 (Version 2)
Quarter: 2025Q2

REPORT INFORMATION
  Report Type: Spontaneous
  Country: IS (occurrence: IS)
  Receive Date: 20250502
  Receipt Date: 20250509
  Transmission Date: 20250717
  Serious: Yes (Death)
  Sender: ABBVIE
  Company Number: IS-ABBVIE-6262248

PATIENT
  Age: 59 Year
  Sex: Female

DRUGS (3)
  1. CARBIDOPA\LEVODOPA [Suspect]
     Active Substance: CARBIDOPA\LEVODOPA
     Indication: Parkinsonism
     Route: 050
     Dates: start: 202206
  2. CARBIDOPA\LEVODOPA [Suspect]
     Active Substance: CARBIDOPA\LEVODOPA
     Indication: On and off phenomenon
     Route: 050
     Dates: start: 202409, end: 20250330
  3. CARBIDOPA\LEVODOPA [Suspect]
     Active Substance: CARBIDOPA\LEVODOPA
     Indication: Multiple system atrophy

REACTIONS (1)
  - Multiple system atrophy [Fatal]

NARRATIVE: CASE EVENT DATE: 20220101
